FAERS Safety Report 7545535-8 (Version None)
Quarter: 2011Q2

REPORT INFORMATION
  Report Type: 
  Country: None (occurrence: None)
  Receive Date: 20110613
  Receipt Date: 20110613
  Transmission Date: 20111010
  Serious: Yes (Hospitalization)
  Sender: FDA-Public Use
  Company Number: None

PATIENT
  Age: 78 Year
  Sex: Male
  Weight: 53.2 kg

DRUGS (1)
  1. MEGESTROL ACETATE [Suspect]
     Indication: FAILURE TO THRIVE
     Dosage: 800 MG EVERY DAY PO
     Route: 048
     Dates: start: 20060407, end: 20110224

REACTIONS (2)
  - ADRENAL INSUFFICIENCY [None]
  - ORTHOSTATIC HYPOTENSION [None]
